FAERS Safety Report 7525762-6 (Version None)
Quarter: 2011Q2

REPORT INFORMATION
  Report Type: 
  Country: None (occurrence: None)
  Receive Date: 20110603
  Receipt Date: 20110603
  Transmission Date: 20111010
  Serious: No
  Sender: FDA-Public Use
  Company Number: None

PATIENT
  Sex: Female
  Weight: 68.0396 kg

DRUGS (1)
  1. PRADAXA [Suspect]
     Dosage: 1 TO 2 A DAY
     Dates: start: 20110519, end: 20110524

REACTIONS (3)
  - THROAT IRRITATION [None]
  - ORAL DISCOMFORT [None]
  - ABDOMINAL PAIN UPPER [None]
